FAERS Safety Report 9767841 (Version 1)
Quarter: 2013Q3

REPORT INFORMATION
  Report Type: Spontaneous
  Country: US (occurrence: None)
  Receive Date: 20130828
  Receipt Date: 20130828
  Transmission Date: 20140515
  Serious: Yes (Hospitalization, Other)
  Sender: FDA-Public Use
  Company Number: 163-21880-13052252

PATIENT
  Age: 79 Year
  Sex: Male

DRUGS (24)
  1. REVLIMID [Suspect]
     Indication: PLASMA CELL MYELOMA
     Route: 048
     Dates: start: 20101208
  2. COUMADIN (WARFARIN SODIUM) [Concomitant]
  3. CIPROFLOXACIN (CIPROFLOXACIN) [Concomitant]
  4. FLAGYL (METRONIDAZOLE) [Concomitant]
  5. ANTIBIOTICS (ANTIBIOTICS) [Concomitant]
  6. ACYCLOVIR (ACICLOVIR) (ACICLOVIR) [Concomitant]
  7. COREG (CARVEDILOL) [Concomitant]
  8. FENOFIBRATE (FENOFIBRATE) (FENOFIBRATE) [Concomitant]
  9. LISINOPRIL (LISINOPRIL) [Concomitant]
  10. NIACIN (NICOTINIC ACID) [Concomitant]
  11. LOVAZA (OMEGA-3 MARINE TRIGLYCERIDES) [Concomitant]
  12. TYLENOL (PARACETAMOL) [Concomitant]
  13. ZOCOR (SIMVASTATIN) [Concomitant]
  14. ASPIRIN (ACETYLSALICYLIC ACID) [Concomitant]
  15. NEO-SYNEPHRINE (PHENYLPHRINE HYDROCHLORIDE) (INJECTION FOR INFUSION) [Concomitant]
  16. OXYGEN (OXYGEN) [Concomitant]
  17. LASIX (FUROSEMIDE) [Concomitant]
  18. PROTONIX [Concomitant]
  19. LEVAQUIN (LEVOFLOXACIN) [Concomitant]
  20. ZOSYN (PIP/TAZO) [Concomitant]
  21. LEUKINE (SARGRAMOSTIM) [Concomitant]
  22. NORMAL SALINE (SODIUM CHLORIDE) [Concomitant]
  23. CEFOXITIN (CEFOXITIN) [Concomitant]
  24. VITAMIN D (ERGOCALCIFEROL) [Concomitant]

REACTIONS (18)
  - Infection [None]
  - Oedema [None]
  - Hot flush [None]
  - Rash [None]
  - Deep vein thrombosis [None]
  - Appendicitis [None]
  - Renal failure acute [None]
  - Septic shock [None]
  - Pneumonia [None]
  - Diverticulitis [None]
  - Diarrhoea [None]
  - Asthenia [None]
  - Respiratory failure [None]
  - Prostatomegaly [None]
  - Aortic aneurysm [None]
  - Bundle branch block right [None]
  - International normalised ratio increased [None]
  - Peripheral artery aneurysm [None]
